FAERS Safety Report 14118395 (Version 2)
Quarter: 2017Q4

REPORT INFORMATION
  Report Type: Report from Study
  Country: CA (occurrence: CA)
  Receive Date: 20171024
  Receipt Date: 20171103
  Transmission Date: 20180321
  Serious: Yes (Other)
  Sender: FDA-Public Use
  Company Number: CA-ROCHE-1912465

PATIENT
  Sex: Male
  Weight: 65.83 kg

DRUGS (11)
  1. ACTEMRA [Suspect]
     Active Substance: TOCILIZUMAB
     Indication: RHEUMATOID ARTHRITIS
     Route: 042
     Dates: start: 20170120, end: 20171015
  2. ACTEMRA [Suspect]
     Active Substance: TOCILIZUMAB
     Route: 042
     Dates: start: 20170821
  3. ACTEMRA [Suspect]
     Active Substance: TOCILIZUMAB
     Dosage: INFUSION NUMBER: 9
     Route: 042
     Dates: start: 20170918
  4. CITALOPRAM HYDROBROMIDE. [Concomitant]
     Active Substance: CITALOPRAM HYDROBROMIDE
  5. SIMPONI [Suspect]
     Active Substance: GOLIMUMAB
     Indication: PRODUCT USED FOR UNKNOWN INDICATION
     Route: 065
  6. IMURAN [Concomitant]
     Active Substance: AZATHIOPRINE
  7. ACTEMRA [Suspect]
     Active Substance: TOCILIZUMAB
     Route: 042
     Dates: start: 20170626
  8. ACTEMRA [Suspect]
     Active Substance: TOCILIZUMAB
     Route: 042
     Dates: start: 20170327
  9. PREDNISONE. [Concomitant]
     Active Substance: PREDNISONE
  10. AZATHIOPRINE. [Concomitant]
     Active Substance: AZATHIOPRINE
  11. NAPROXEN. [Concomitant]
     Active Substance: NAPROXEN
     Route: 065

REACTIONS (13)
  - Pain [Not Recovered/Not Resolved]
  - Drug ineffective [Unknown]
  - Insomnia [Not Recovered/Not Resolved]
  - Infusion related reaction [Unknown]
  - Joint range of motion decreased [Not Recovered/Not Resolved]
  - Gait disturbance [Not Recovered/Not Resolved]
  - Weight decreased [Unknown]
  - Depression [Unknown]
  - Drug effect decreased [Unknown]
  - Asthenia [Unknown]
  - Ill-defined disorder [Unknown]
  - Joint swelling [Not Recovered/Not Resolved]
  - Rheumatoid arthritis [Unknown]
